FAERS Safety Report 9952910 (Version 1)
Quarter: 2014Q1

REPORT INFORMATION
  Report Type: Report from Study
  Country: US (occurrence: US)
  Receive Date: 20140304
  Receipt Date: 20140304
  Transmission Date: 20141002
  Serious: No
  Sender: FDA-Public Use
  Company Number: US-ABBVIE-13P-163-1077707-00

PATIENT
  Age: 21 Year
  Sex: Male
  Weight: 90.8 kg

DRUGS (5)
  1. HUMIRA [Suspect]
     Indication: CROHN^S DISEASE
     Dates: start: 20130214, end: 20130214
  2. HUMIRA [Suspect]
     Dates: start: 20130228, end: 20130228
  3. HUMIRA [Suspect]
     Dates: start: 20130314
  4. ASACOL [Concomitant]
     Indication: CROHN^S DISEASE
  5. NEXIUM [Concomitant]
     Indication: CROHN^S DISEASE

REACTIONS (5)
  - Drug prescribing error [Recovered/Resolved]
  - Upper respiratory tract infection [Recovered/Resolved]
  - Injection site pain [Recovered/Resolved]
  - Injection site bruising [Recovered/Resolved]
  - Malaise [Recovered/Resolved]
